FAERS Safety Report 6665875-4 (Version None)
Quarter: 2010Q2

REPORT INFORMATION
  Report Type: 
  Country: None (occurrence: None)
  Receive Date: 20100402
  Receipt Date: 20100331
  Transmission Date: 20101027
  Serious: Yes (Other)
  Sender: FDA-Public Use
  Company Number: GB-ROCHE-685503

PATIENT
  Sex: Female
  Weight: 70.2 kg

DRUGS (4)
  1. PEGINTERFERON ALFA-2A [Suspect]
     Indication: HEPATITIS C
     Dosage: LAST DOSE PRIOR TO SAE: 08 FEBRUARY 2010.  THERAPY PERMANENTLY STOPPED
     Route: 058
     Dates: start: 20100125, end: 20100211
  2. RO 5024048 (POLYMERASE INHIBITOR) [Suspect]
     Indication: HEPATITIS C
     Dosage: LAST DOSE PRIOR TO SAE: 11 FEBRUARY 2010  THERAPY PERMANENTLY STOPPED
     Route: 048
     Dates: start: 20100125, end: 20100211
  3. RIBAVIRIN [Suspect]
     Indication: HEPATITIS C
     Dosage: FREQUENCY: DAILY. LAST DOSE PRIOR TO SAE: 11 FEBRUARY 2010.  THERAPY PERMANENTLY STOPPED
     Route: 048
     Dates: start: 20100125, end: 20100211
  4. FLUOXETINE [Concomitant]

REACTIONS (1)
  - OPTIC NEURITIS [None]
